FAERS Safety Report 12746692 (Version 1)
Quarter: 2016Q3

REPORT INFORMATION
  Report Type: Spontaneous
  Country: US (occurrence: US)
  Receive Date: 20160915
  Receipt Date: 20160915
  Transmission Date: 20161109
  Serious: Yes (Death)
  Sender: FDA-Public Use
  Company Number: None

PATIENT
  Age: 73 Year
  Sex: Female
  Weight: 121 kg

DRUGS (2)
  1. OXYCODONE/APAP [Suspect]
     Active Substance: ACETAMINOPHEN\OXYCODONE HYDROCHLORIDE
  2. HYDROMORPHONE [Suspect]
     Active Substance: HYDROMORPHONE

REACTIONS (8)
  - Lethargy [None]
  - Lung consolidation [None]
  - Hypoglycaemia [None]
  - Agitation [None]
  - Femur fracture [None]
  - Fall [None]
  - Cardio-respiratory arrest [None]
  - Acute respiratory failure [None]

NARRATIVE: CASE EVENT DATE: 20160803
